FAERS Safety Report 5334683-9 (Version None)
Quarter: 2007Q2

REPORT INFORMATION
  Report Type: 
  Country: None (occurrence: None)
  Receive Date: 20070521
  Receipt Date: 20070504
  Transmission Date: 20071010
  Serious: Yes (Death)
  Sender: FDA-Public Use
  Company Number: DSA_25108_2004

PATIENT
  Age: 25 Year
  Sex: Female

DRUGS (7)
  1. LORAZEPAM [Suspect]
     Dosage: (ORAL)
     Route: 048
  2. DILTIAZEM [Suspect]
     Dosage: (ORAL)
     Route: 048
  3. BENZTROPINE MESYLATE [Suspect]
     Dosage: (ORAL)
     Route: 048
  4. ESCITALOPRAM OXALATE [Suspect]
  5. ZIPRASIDONE [Concomitant]
  6. FEXOFENADINE [Concomitant]
  7. OXCARBAZEPINE [Concomitant]

REACTIONS (13)
  - ATRIAL FIBRILLATION [None]
  - BLOOD PH DECREASED [None]
  - CARDIAC ARREST [None]
  - COMPLETED SUICIDE [None]
  - DRUG TOXICITY [None]
  - ELECTROCARDIOGRAM QT CORRECTED INTERVAL PROLONGED [None]
  - HAEMODIALYSIS [None]
  - HYPOTENSION [None]
  - HYPOXIA [None]
  - PNEUMONIA ASPIRATION [None]
  - RENAL FAILURE [None]
  - RESPIRATORY ARREST [None]
  - SUPRAVENTRICULAR TACHYCARDIA [None]
